FAERS Safety Report 9570440 (Version 1)
Quarter: 2013Q3

REPORT INFORMATION
  Report Type: Report from Study
  Country: GR (occurrence: GR)
  Receive Date: 20130930
  Receipt Date: 20130930
  Transmission Date: 20140515
  Serious: Yes (Hospitalization)
  Sender: FDA-Public Use
  Company Number: GR-US-EMD SERONO, INC.-7239618

PATIENT
  Age: 26 Year
  Sex: Female

DRUGS (4)
  1. REBIF [Suspect]
     Indication: MULTIPLE SCLEROSIS
     Route: 058
     Dates: start: 20130225, end: 20130807
  2. REBIF [Suspect]
     Route: 058
     Dates: start: 20130811
  3. CYCLOSPORIN [Concomitant]
     Indication: UVEITIS
     Route: 048
  4. AZATHIOPRINE [Concomitant]
     Indication: UVEITIS
     Route: 048

REACTIONS (1)
  - Hypoaesthesia [Recovered/Resolved]
